FAERS Safety Report 7305469-0 (Version None)
Quarter: 2011Q1

REPORT INFORMATION
  Report Type: 
  Country: None (occurrence: None)
  Receive Date: 20110222
  Receipt Date: 20110217
  Transmission Date: 20110831
  Serious: Yes (Death, Other)
  Sender: FDA-Public Use
  Company Number: US-AMGEN-US352341

PATIENT
  Age: 83 Year
  Sex: Female
  Weight: 65.4 kg

DRUGS (14)
  1. AZATHIOPRINE [Concomitant]
  2. CORTICOSTEROID NOS [Concomitant]
     Dosage: UNK UNK, UNK
     Route: 065
     Dates: start: 19800101
  3. IMMUNOGLOBULIN HUMAN NORMAL [Concomitant]
  4. IMMUNOGLOBULINS [Concomitant]
     Dosage: 30 G, UNK
     Route: 042
     Dates: start: 19800101
  5. FUROSEMIDE [Concomitant]
  6. LEVOTHYROXINE SODIUM [Concomitant]
  7. CYCLOPHOSPHAMIDE [Concomitant]
  8. METOPROLOL TARTRATE [Concomitant]
  9. POTASSIUM CHLORIDE [Concomitant]
  10. PLATELETS [Concomitant]
  11. NPLATE [Suspect]
     Indication: IDIOPATHIC THROMBOCYTOPENIC PURPURA
     Dosage: 2 A?G/KG, UNK
     Route: 058
     Dates: start: 20081125, end: 20090501
  12. METHYLPREDNISOLONE [Concomitant]
  13. ATENOLOL [Concomitant]
  14. WARFARIN SODIUM [Concomitant]

REACTIONS (3)
  - THROMBOCYTOPENIA [None]
  - DEATH [None]
  - THERAPEUTIC RESPONSE DECREASED [None]
